FAERS Safety Report 5316855-2 (Version None)
Quarter: 2007Q2

REPORT INFORMATION
  Report Type: 
  Country: None (occurrence: None)
  Receive Date: 20070501
  Receipt Date: 20070501
  Transmission Date: 20071010
  Serious: No
  Sender: FDA-Public Use
  Company Number: None

PATIENT
  Age: 65 Year
  Sex: Female
  Weight: 77.1115 kg

DRUGS (1)
  1. LISINOPRIL [Suspect]
     Indication: HYPERTENSION
     Dosage: 5MG  1 PER DAY  PO
     Route: 048
     Dates: start: 20070411, end: 20070420

REACTIONS (11)
  - BACK PAIN [None]
  - CHEST PAIN [None]
  - CHILLS [None]
  - COUGH [None]
  - DIARRHOEA [None]
  - DYSPNOEA [None]
  - EXERCISE TOLERANCE DECREASED [None]
  - FATIGUE [None]
  - LOCAL SWELLING [None]
  - NAUSEA [None]
  - PYREXIA [None]
